FAERS Safety Report 7682792-1 (Version None)
Quarter: 2011Q3

REPORT INFORMATION
  Report Type: 
  Country: None (occurrence: None)
  Receive Date: 20110812
  Receipt Date: 20110812
  Transmission Date: 20111222
  Serious: Yes (Hospitalization)
  Sender: FDA-Public Use
  Company Number: None

PATIENT
  Age: 86 Year
  Sex: Male
  Weight: 79.3 kg

DRUGS (2)
  1. HYDROCHLOROTHIAZIDE [Suspect]
     Indication: HYPERTENSION
     Dosage: 25MG EVERY DAY PO
     Route: 048
     Dates: start: 20110725, end: 20110728
  2. LISINOPRIL [Suspect]
     Indication: HYPERTENSION
     Dosage: 20 MG EVERY DAY PO
     Route: 048
     Dates: start: 20061116, end: 20110802

REACTIONS (5)
  - DYSPNOEA [None]
  - CHEST PAIN [None]
  - SYNCOPE [None]
  - ASTHENIA [None]
  - ANAEMIA [None]
